FAERS Safety Report 10166384 (Version 1)
Quarter: 2014Q2

REPORT INFORMATION
  Report Type: Spontaneous
  Country: GB (occurrence: GB)
  Receive Date: 20140512
  Receipt Date: 20140512
  Transmission Date: 20141212
  Serious: Yes (Disabling, Other)
  Sender: FDA-Public Use
  Company Number: GB-ELI_LILLY_AND_COMPANY-GB201404009234

PATIENT
  Sex: Male

DRUGS (1)
  1. PROZAC [Suspect]
     Indication: DEPRESSION
     Dosage: UNK, UNKNOWN
     Route: 065
     Dates: start: 1995, end: 2009

REACTIONS (9)
  - Drug withdrawal syndrome [Unknown]
  - Cognitive disorder [Unknown]
  - Pain [Unknown]
  - Apathy [Unknown]
  - Dizziness [Unknown]
  - Vision blurred [Unknown]
  - Memory impairment [Unknown]
  - Asthenia [Unknown]
  - Drug ineffective [Unknown]
